FAERS Safety Report 5258360-8 (Version None)
Quarter: 2007Q1

REPORT INFORMATION
  Report Type: 
  Country: None (occurrence: None)
  Receive Date: 20070306
  Receipt Date: 20070306
  Transmission Date: 20070707
  Serious: Yes (Other)
  Sender: FDA-Public Use
  Company Number: None

PATIENT
  Sex: Male
  Weight: 116.5744 kg

DRUGS (2)
  1. LEXAPRO [Suspect]
     Indication: DEPRESSION
     Dosage: 20MG ONCE A DAY PO
     Route: 048
     Dates: start: 20060701
  2. IMITREX [Suspect]
     Indication: MIGRAINE
     Dosage: IMITREX 50 MG AS NEEDED PO
     Route: 048
     Dates: start: 20050901, end: 20070101

REACTIONS (2)
  - ADVERSE DRUG REACTION [None]
  - HEART RATE IRREGULAR [None]
